FAERS Safety Report 12382594 (Version 1)
Quarter: 2016Q2

REPORT INFORMATION
  Report Type: Report from Study
  Country: US (occurrence: US)
  Receive Date: 20160518
  Receipt Date: 20160518
  Transmission Date: 20160815
  Serious: No
  Sender: FDA-Public Use
  Company Number: US-MALLINCKRODT-T201601043

PATIENT
  Sex: Female
  Weight: 92 kg

DRUGS (1)
  1. REPOSITORY CORTICOTROPIN INJECTION [Suspect]
     Active Substance: CORTICOTROPIN
     Indication: SYSTEMIC LUPUS ERYTHEMATOSUS
     Dosage: 80 UNITS EVERY OTHER WEEK
     Route: 058

REACTIONS (28)
  - Dyspnoea [Unknown]
  - Palpitations [Unknown]
  - Dyspepsia [Unknown]
  - Dry mouth [Unknown]
  - Sensation of foreign body [Unknown]
  - Nasal congestion [Unknown]
  - Constipation [Unknown]
  - Memory impairment [Unknown]
  - Alopecia [Unknown]
  - Abdominal pain [Unknown]
  - Nausea [Unknown]
  - Balance disorder [Unknown]
  - Back pain [Unknown]
  - Tinnitus [Unknown]
  - Decreased appetite [Unknown]
  - Arthralgia [Unknown]
  - Fatigue [Unknown]
  - Deafness [Unknown]
  - Mouth ulceration [Unknown]
  - Anxiety [Unknown]
  - Insomnia [Unknown]
  - Rash [Unknown]
  - Weight increased [Unknown]
  - Cough [Unknown]
  - Dizziness [Unknown]
  - Dry eye [Unknown]
  - Neck pain [Unknown]
  - Muscular weakness [Unknown]
